FAERS Safety Report 8903124 (Version 2)
Quarter: 2013Q1

REPORT INFORMATION
  Report Type: Spontaneous
  Country: US (occurrence: US)
  Receive Date: 20121112
  Receipt Date: 20130326
  Transmission Date: 20140127
  Serious: Yes (Hospitalization)
  Sender: FDA-Public Use
  Company Number: US-ELI_LILLY_AND_COMPANY-US201211000668

PATIENT
  Sex: Male

DRUGS (7)
  1. ZYPREXA RELPREVV [Suspect]
     Indication: BIPOLAR DISORDER
     Dosage: 405 MG, MONTHLY (1/M)
  2. ZYPREXA [Suspect]
     Indication: BIPOLAR DISORDER
     Dosage: 10 MG, EACH MORNING
     Dates: start: 2010
  3. ZYPREXA [Suspect]
     Dosage: 20 MG, EACH EVENING
  4. ZYPREXA [Suspect]
     Dosage: 20 MG, QD
  5. ZYPREXA ZYDIS [Suspect]
     Indication: BIPOLAR DISORDER
     Dosage: 1 DF, UNKNOWN
  6. HALOPERIDOL [Concomitant]
     Dosage: 5 MG, EACH EVENING
  7. LITHIUM CARBONATE [Concomitant]
     Indication: BIPOLAR DISORDER
     Dosage: 1200 MG, UNKNOWN

REACTIONS (2)
  - Bipolar disorder [Unknown]
  - Overdose [Unknown]
